FAERS Safety Report 19036104 (Version 1)
Quarter: 2021Q1

REPORT INFORMATION
  Report Type: Spontaneous
  Country: CN (occurrence: CN)
  Receive Date: 20210321
  Receipt Date: 20210321
  Transmission Date: 20210420
  Serious: Yes (Other)
  Sender: FDA-Public Use
  Company Number: CN-ROCHE-2791251

PATIENT
  Age: 28 Year
  Sex: Female
  Weight: 45 kg

DRUGS (6)
  1. AVASTIN [Suspect]
     Active Substance: BEVACIZUMAB
     Indication: GASTRIC CANCER
     Route: 041
     Dates: start: 20210116, end: 20210116
  2. PEMBROLIZUMAB. [Suspect]
     Active Substance: PEMBROLIZUMAB
     Indication: GASTRIC CANCER
     Route: 041
     Dates: start: 20210116, end: 20210116
  3. SODIUM CHLORIDE IV [Concomitant]
     Active Substance: SODIUM CHLORIDE
     Dosage: LOT NO.1911083501, SOLVENT FOR IRINOTECAN HYDROCHLORIDE INJECTION
     Route: 041
     Dates: start: 20210116, end: 20210116
  4. SODIUM CHLORIDE IV [Concomitant]
     Active Substance: SODIUM CHLORIDE
     Dosage: LOT NO. 2008053305, SOLVENT FOR BEVACIZUMAB
     Route: 041
     Dates: start: 20210116, end: 20210116
  5. IRINOTECAN HYDROCHLORIDE INJECTION [Suspect]
     Active Substance: IRINOTECAN HYDROCHLORIDE
     Indication: GASTRIC CANCER
     Route: 041
     Dates: start: 20210116, end: 20210116
  6. SODIUM CHLORIDE IV [Concomitant]
     Active Substance: SODIUM CHLORIDE
     Indication: GASTRIC CANCER
     Dosage: LOT NO.2008053305, SOLVENT FOR PEMBROLIZUMAB INJECTION
     Route: 041
     Dates: start: 20210116, end: 20210116

REACTIONS (2)
  - Gastric perforation [Not Recovered/Not Resolved]
  - Off label use [Unknown]

NARRATIVE: CASE EVENT DATE: 20210124
